FAERS Safety Report 8791374 (Version 1)
Quarter: 2012Q4

REPORT INFORMATION
  Report Type: Spontaneous
  Country: US (occurrence: None)
  Receive Date: 20120912
  Receipt Date: 20120912
  Transmission Date: 20130627
  Serious: Yes (Hospitalization, Other)
  Sender: FDA-Public Use
  Company Number: 2012MA010701

PATIENT
  Age: 75 Year
  Sex: Male

DRUGS (2)
  1. TRIAMCINOLONE [Suspect]
     Indication: CYSTOID MACULAR EDEMA
     Route: 031
     Dates: start: 20030728, end: 20030728
  2. DEPO-MEDROL [Concomitant]

REACTIONS (3)
  - Cytomegalovirus chorioretinitis [None]
  - Ocular ischaemic syndrome [None]
  - Anterior chamber cell [None]
